FAERS Safety Report 7954195-3 (Version None)
Quarter: 2011Q4

REPORT INFORMATION
  Report Type: 
  Country: None (occurrence: None)
  Receive Date: 20111202
  Receipt Date: 20111128
  Transmission Date: 20120403
  Serious: Yes (Death)
  Sender: FDA-Public Use
  Company Number: IT-CUBIST-2011S1000844

PATIENT
  Age: 58 Year
  Sex: Male

DRUGS (3)
  1. CUBICIN [Suspect]
     Indication: ENDOCARDITIS
  2. CUBICIN [Suspect]
     Indication: DEVICE RELATED INFECTION
  3. MEROPENEM [Concomitant]
     Indication: PRODUCT USED FOR UNKNOWN INDICATION
     Dosage: DOSE UNIT:U UNKNOWN
     Route: 065

REACTIONS (2)
  - VENTRICULAR DYSFUNCTION [None]
  - PULMONARY EMBOLISM [None]
